FAERS Safety Report 8301751-9 (Version None)
Quarter: 2012Q2

REPORT INFORMATION
  Report Type: 
  Country: None (occurrence: None)
  Receive Date: 20120420
  Receipt Date: 20120411
  Transmission Date: 20120825
  Serious: Yes (Hospitalization)
  Sender: FDA-Public Use
  Company Number: US-ACTELION-A-US2012-62753

PATIENT

DRUGS (1)
  1. TRACLEER [Suspect]
     Indication: PULMONARY ARTERIAL HYPERTENSION
     Dosage: UNK
     Route: 048
     Dates: start: 20120127

REACTIONS (7)
  - DIZZINESS [None]
  - DYSPNOEA [None]
  - PULMONARY FIBROSIS [None]
  - INFECTION [None]
  - MALAISE [None]
  - HAEMORRHOIDS [None]
  - DYSPNOEA EXERTIONAL [None]
